FAERS Safety Report 5414092-4 (Version None)
Quarter: 2007Q3

REPORT INFORMATION
  Report Type: 
  Country: None (occurrence: None)
  Receive Date: 20070814
  Receipt Date: 20070802
  Transmission Date: 20080115
  Serious: Yes (Hospitalization, Other)
  Sender: FDA-Public Use
  Company Number: FR-PFIZER INC-2006108647

PATIENT
  Sex: Male

DRUGS (7)
  1. LYRICA [Suspect]
     Indication: PAIN
     Dates: start: 20060501, end: 20060713
  2. LYRICA [Suspect]
     Indication: TEMPORAL ARTERITIS
  3. LYRICA [Suspect]
     Indication: ARTHRALGIA
  4. RITONAVIR [Concomitant]
  5. TENOFOVIR DISOPROXIL FUMARATE [Concomitant]
  6. ZIDOVUDINE [Concomitant]
  7. PARACETAMOL [Concomitant]

REACTIONS (14)
  - BLINDNESS [None]
  - CONSTIPATION [None]
  - DRY EYE [None]
  - DRY MOUTH [None]
  - DYSGRAPHIA [None]
  - EJACULATION DISORDER [None]
  - ERECTILE DYSFUNCTION [None]
  - FACIAL PAIN [None]
  - NEUROPATHY [None]
  - OPTIC NERVE INJURY [None]
  - SUICIDAL IDEATION [None]
  - VISION BLURRED [None]
  - VISUAL ACUITY REDUCED [None]
  - WEIGHT DECREASED [None]
